FAERS Safety Report 4321965-2 (Version None)
Quarter: 2004Q1

REPORT INFORMATION
  Report Type: 
  Country: None (occurrence: None)
  Receive Date: 20040319
  Receipt Date: 20040309
  Transmission Date: 20041129
  Serious: Yes (Hospitalization)
  Sender: FDA-Public Use
  Company Number: US068100

PATIENT
  Age: 73 Year
  Sex: Female

DRUGS (10)
  1. KINERET [Suspect]
     Indication: RHEUMATOID ARTHRITIS
     Dosage: 100 MG, 1 IN 1 DAYS, SC
     Route: 058
     Dates: start: 20021001, end: 20031016
  2. REMICADE [Suspect]
     Dates: start: 20010823, end: 20020703
  3. METHOTREXATE [Suspect]
     Dates: start: 20010112, end: 20031017
  4. PREDNISONE [Suspect]
     Dosage: 5 MG, 1 IN 1 DAYS
     Dates: start: 20010112
  5. GLYBURIDE [Concomitant]
  6. SERTRALINE HCL [Concomitant]
  7. SIMVASTATIN [Concomitant]
  8. ATENOLOL [Concomitant]
  9. LANSOPRAZOLE [Concomitant]
  10. DILTIAZEM HYDROCHLORIDE [Concomitant]

REACTIONS (5)
  - ARTHRALGIA [None]
  - DISSEMINATED TUBERCULOSIS [None]
  - JOINT SWELLING [None]
  - JOINT TUBERCULOSIS [None]
  - LUNG NEOPLASM [None]
